FAERS Safety Report 9122712 (Version 1)
Quarter: 2013Q1

REPORT INFORMATION
  Report Type: Spontaneous
  Country: US (occurrence: None)
  Receive Date: 20130225
  Receipt Date: 20130225
  Transmission Date: 20140127
  Serious: Yes (Life-Threatening, Hospitalization, Disabling, Other)
  Sender: FDA-Public Use
  Company Number: None

PATIENT
  Sex: Female
  Weight: 103.42 kg

DRUGS (1)
  1. MACROBID [Suspect]
     Indication: URINARY INCONTINENCE
     Dosage: PO
     Route: 048

REACTIONS (7)
  - Pruritus [None]
  - Asthenia [None]
  - Impaired driving ability [None]
  - Movement disorder [None]
  - Urinary incontinence [None]
  - Faecal incontinence [None]
  - Speech disorder [None]
